FAERS Safety Report 19309847 (Version 1)
Quarter: 2021Q2

REPORT INFORMATION
  Report Type: Report from Study
  Country: US (occurrence: US)
  Receive Date: 20210526
  Receipt Date: 20210526
  Transmission Date: 20210717
  Serious: Yes (Other)
  Sender: FDA-Public Use
  Company Number: US-EXELIXIS-CABO-21039453

PATIENT
  Sex: Female

DRUGS (1)
  1. CABOMETYX [Suspect]
     Active Substance: CABOZANTINIB S-MALATE
     Indication: RENAL CELL CARCINOMA
     Dosage: 60 MG, QD
     Dates: start: 20210325, end: 20210414

REACTIONS (6)
  - Eating disorder [Unknown]
  - Squamous cell carcinoma of skin [Not Recovered/Not Resolved]
  - Hypokinesia [Recovering/Resolving]
  - Asthenia [Unknown]
  - Fatigue [Unknown]
  - Blood pressure systolic increased [Recovering/Resolving]
